FAERS Safety Report 4558557-6 (Version None)
Quarter: 2005Q1

REPORT INFORMATION
  Report Type: 
  Country: None (occurrence: None)
  Receive Date: 20050119
  Receipt Date: 20050112
  Transmission Date: 20050727
  Serious: Yes (Death)
  Sender: FDA-Public Use
  Company Number: 2005-124219-NL

PATIENT
  Sex: Female

DRUGS (6)
  1. MIRTAZAPINE [Suspect]
     Dosage: PARENTERAL
     Route: 051
  2. ERYTHROMYCIN STEARATE [Suspect]
     Dosage: PARENTERAL
     Route: 051
     Dates: start: 20040627, end: 20040711
  3. PRAZEPAM [Suspect]
     Dosage: PARENTERAL
     Route: 051
  4. AMOXICILLIN [Suspect]
     Dosage: PARENTERAL
     Route: 051
     Dates: start: 20040627, end: 20040711
  5. ZUCLOPENTHIXOL [Suspect]
     Dosage: PARENTERAL
     Route: 051
  6. FLUMAZENIL [Suspect]
     Dosage: PARENTERAL
     Route: 051
     Dates: start: 20040627

REACTIONS (10)
  - CONGENITAL DIAPHRAGMATIC HERNIA [None]
  - CONGENITAL RENAL CYST [None]
  - CYSTIC LYMPHANGIOMA [None]
  - DRUG EXPOSURE DURING PREGNANCY [None]
  - FOETAL MALFORMATION [None]
  - HEART DISEASE CONGENITAL [None]
  - HYGROMA COLLI [None]
  - PLACENTAL DISORDER [None]
  - PREMATURE BABY [None]
  - SYNOVIAL CYST [None]
